FAERS Safety Report 9315152 (Version 1)
Quarter: 2013Q2

REPORT INFORMATION
  Report Type: Spontaneous
  Country: US (occurrence: US)
  Receive Date: 20130529
  Receipt Date: 20130529
  Transmission Date: 20140414
  Serious: No
  Sender: FDA-Public Use
  Company Number: US-ALLERGAN-1213467US

PATIENT
  Age: 77 Year
  Sex: Male

DRUGS (1)
  1. ZYMAXID [Suspect]
     Indication: POSTOPERATIVE CARE
     Dosage: 1 GTT, SINGLE
     Route: 047
     Dates: start: 20120927, end: 20120927

REACTIONS (3)
  - Expired drug administered [Unknown]
  - Eye irritation [Recovered/Resolved]
  - Eye irritation [Unknown]
